FAERS Safety Report 6760842-4 (Version None)
Quarter: 2010Q2

REPORT INFORMATION
  Report Type: 
  Country: None (occurrence: None)
  Receive Date: 20100608
  Receipt Date: 20100526
  Transmission Date: 20101027
  Serious: Yes (Hospitalization)
  Sender: FDA-Public Use
  Company Number: PHHY2010BR34213

PATIENT
  Sex: Male

DRUGS (3)
  1. DIOVAN [Suspect]
     Dosage: 160 MG, UNK
  2. DIOVAN [Suspect]
     Dosage: 80 MG, UNK
  3. HIDRION [Concomitant]
     Dosage: UNK

REACTIONS (3)
  - ABDOMINAL DISTENSION [None]
  - DRUG DOSE OMISSION [None]
  - DYSPNOEA [None]
